FAERS Safety Report 21377175 (Version 1)
Quarter: 2022Q3

REPORT INFORMATION
  Report Type: Spontaneous
  Country: US (occurrence: US)
  Receive Date: 20220926
  Receipt Date: 20220926
  Transmission Date: 20221027
  Serious: No
  Sender: FDA-Public Use
  Company Number: US-SCYNEXIS, INC.-2022SCY000053

PATIENT
  Sex: Female

DRUGS (5)
  1. BREXAFEMME [Suspect]
     Active Substance: IBREXAFUNGERP CITRATE
     Indication: Oral candidiasis
     Dosage: 300 MILLIGRAM, BID
     Route: 048
     Dates: start: 20220706, end: 20220706
  2. BREXAFEMME [Suspect]
     Active Substance: IBREXAFUNGERP CITRATE
     Dosage: 300 MILLIGRAM, BID
     Route: 048
     Dates: start: 20220716, end: 20220716
  3. PANTOTHENIC ACID [Concomitant]
     Active Substance: PANTOTHENIC ACID
     Indication: Detoxification
     Dosage: ONE AND HALF WEEK
     Route: 065
  4. Boric acid vaginal suppositories [Concomitant]
     Indication: Vulvovaginal candidiasis
     Dosage: UNK
     Route: 067
  5. DIVIGEL [Concomitant]
     Active Substance: ESTRADIOL
     Indication: Hormone therapy
     Dosage: UNK
     Route: 065

REACTIONS (1)
  - Off label use [Unknown]
